FAERS Safety Report 8936720 (Version 1)
Quarter: 2012Q4

REPORT INFORMATION
  Report Type: 
  Country: AU (occurrence: AU)
  Receive Date: 20121130
  Receipt Date: 20121130
  Transmission Date: 20130627
  Serious: Yes (Other)
  Sender: FDA-Public Use
  Company Number: AU-ROCHE-1160916

PATIENT

DRUGS (6)
  1. HERCEPTIN [Suspect]
     Indication: PRODUCT USED FOR UNKNOWN INDICATION
     Route: 065
  2. XELODA [Suspect]
     Indication: PRODUCT USED FOR UNKNOWN INDICATION
     Route: 065
  3. DENOSUMAB [Concomitant]
  4. TAXOTERE [Concomitant]
  5. NAVELBINE [Concomitant]
  6. LAPATINIB [Concomitant]

REACTIONS (5)
  - Functional gastrointestinal disorder [Unknown]
  - Diarrhoea [Unknown]
  - Disease progression [Unknown]
  - Metastases to central nervous system [Unknown]
  - Bone cancer [Unknown]
